FAERS Safety Report 19297954 (Version 1)
Quarter: 2021Q2

REPORT INFORMATION
  Report Type: Report from Study
  Country: IT (occurrence: IT)
  Receive Date: 20210525
  Receipt Date: 20210525
  Transmission Date: 20210717
  Serious: Yes (Other)
  Sender: FDA-Public Use
  Company Number: IT-AUROBINDO-AUR-APL-2021-021210

PATIENT

DRUGS (4)
  1. AZITHROMYCIN ANHYDROUS. [Suspect]
     Active Substance: AZITHROMYCIN ANHYDROUS
     Indication: COVID-19 PNEUMONIA
     Dosage: 500 MILLIGRAM
     Route: 065
     Dates: start: 2020
  2. DARUNAVIR [Suspect]
     Active Substance: DARUNAVIR
     Indication: COVID-19 PNEUMONIA
     Dosage: 800 MILLIGRAM
     Route: 065
     Dates: start: 2020
  3. HYDROXYCHLOROQUINE [Suspect]
     Active Substance: HYDROXYCHLOROQUINE
     Indication: COVID-19 PNEUMONIA
     Dosage: 200 MILLIGRAM
     Route: 065
     Dates: start: 2020
  4. RITONAVIR. [Suspect]
     Active Substance: RITONAVIR
     Indication: COVID-19 PNEUMONIA
     Dosage: 100 MILLIGRAM
     Route: 048
     Dates: start: 2020

REACTIONS (2)
  - Acute generalised exanthematous pustulosis [Unknown]
  - Off label use [Unknown]

NARRATIVE: CASE EVENT DATE: 2020
